FAERS Safety Report 9555807 (Version 1)
Quarter: 2013Q3

REPORT INFORMATION
  Report Type: Spontaneous
  Country: US (occurrence: None)
  Receive Date: 20130726
  Receipt Date: 20130726
  Transmission Date: 20140515
  Serious: Yes (Hospitalization)
  Sender: FDA-Public Use
  Company Number: UTC-024129

PATIENT
  Age: 40 Year
  Sex: Female
  Weight: 61.81 kg

DRUGS (3)
  1. REMODULIN [Suspect]
     Indication: PULMONARY ARTERIAL HYPERTENSION
     Dates: start: 20120712, end: 20121030
  2. ADCIRCA (TADALAFIL) [Concomitant]
  3. LETAIRIS (AMBRISENTAN) (TABLETS) [Concomitant]

REACTIONS (2)
  - Device related infection [None]
  - Medical device complication [None]
